FAERS Safety Report 17849484 (Version 1)
Quarter: 2020Q2

REPORT INFORMATION
  Report Type: Spontaneous
  Country: US (occurrence: US)
  Receive Date: 20200602
  Receipt Date: 20200602
  Transmission Date: 20200714
  Serious: Yes (Other)
  Sender: FDA-Public Use
  Company Number: US-ASTELLAS-2020US018514

PATIENT
  Age: 59 Year
  Sex: Female

DRUGS (5)
  1. MYCOPHENOLIC ACID. [Concomitant]
     Active Substance: MYCOPHENOLIC ACID
     Indication: HEART TRANSPLANT
     Route: 065
  2. LOPINAVIR/RITONAVIR [Interacting]
     Active Substance: LOPINAVIR\RITONAVIR
     Indication: COVID-19
     Route: 065
     Dates: start: 2020
  3. TACROLIMUS. [Interacting]
     Active Substance: TACROLIMUS
     Indication: HEART TRANSPLANT
     Dosage: 6 MG, TWICE DAILY (GOAL TROUGH LEVEL OF 4-6 NG/ML)
     Route: 065
  4. MICAFUNGIN. [Suspect]
     Active Substance: MICAFUNGIN SODIUM
     Indication: ANTIFUNGAL TREATMENT
     Route: 065
     Dates: start: 2020
  5. TACROLIMUS. [Interacting]
     Active Substance: TACROLIMUS
     Dosage: UNK UNK, UNKNOWN FREQ. (TROUGH WAS 7.0 NG/ML, TROUGH OF 6.7 NG/ML, 60% DOSE REDUCTION)
     Route: 065
     Dates: start: 2020, end: 2020

REACTIONS (4)
  - Drug interaction [Unknown]
  - Product use in unapproved indication [Unknown]
  - Immunosuppressant drug level increased [Unknown]
  - Chronic kidney disease [Unknown]

NARRATIVE: CASE EVENT DATE: 2020
